FAERS Safety Report 22366667 (Version 1)
Quarter: 2023Q2

REPORT INFORMATION
  Report Type: Spontaneous
  Country: US (occurrence: US)
  Receive Date: 20230525
  Receipt Date: 20230525
  Transmission Date: 20230721
  Serious: No
  Sender: FDA-Public Use
  Company Number: None

PATIENT
  Sex: Female
  Weight: 79.38 kg

DRUGS (1)
  1. BELIMUMAB [Suspect]
     Active Substance: BELIMUMAB
     Indication: Rheumatic disorder
     Dosage: UNK AUTO INJECTION

REACTIONS (5)
  - Pain [Unknown]
  - Fatigue [Unknown]
  - Depressed mood [Unknown]
  - Product dose omission issue [Unknown]
  - Product use in unapproved indication [Unknown]
